FAERS Safety Report 25111879 (Version 1)
Quarter: 2025Q1

REPORT INFORMATION
  Report Type: Spontaneous
  Country: CA (occurrence: CA)
  Receive Date: 20250324
  Receipt Date: 20250324
  Transmission Date: 20250409
  Serious: Yes (Other)
  Sender: Haleon PLC
  Company Number: CA-HALEON-2234578

PATIENT
  Age: 51 Year
  Sex: Female

DRUGS (5)
  1. ADVIL [Suspect]
     Active Substance: IBUPROFEN
     Indication: Product used for unknown indication
  2. EPIPEN [Concomitant]
     Active Substance: EPINEPHRINE
     Indication: Product used for unknown indication
  3. PENTASA [Concomitant]
     Active Substance: MESALAMINE
     Indication: Colitis ulcerative
  4. BILASTINE [Concomitant]
     Active Substance: BILASTINE
     Indication: Product used for unknown indication
  5. CERTOLIZUMAB PEGOL [Suspect]
     Active Substance: CERTOLIZUMAB PEGOL
     Indication: Ankylosing spondylitis
     Route: 058

REACTIONS (5)
  - Ankylosing spondylitis [Not Recovered/Not Resolved]
  - Mental impairment [Not Recovered/Not Resolved]
  - Pain [Not Recovered/Not Resolved]
  - Injection site discolouration [Not Recovered/Not Resolved]
  - Drug dependence [Not Recovered/Not Resolved]
